FAERS Safety Report 21675122 (Version 1)
Quarter: 2022Q4

REPORT INFORMATION
  Report Type: Spontaneous
  Country: DE (occurrence: DE)
  Receive Date: 20221202
  Receipt Date: 20221202
  Transmission Date: 20230112
  Serious: Yes (Other)
  Sender: FDA-Public Use
  Company Number: DE-TEVA-2022-DE-2829839

PATIENT
  Age: 68 Year
  Sex: Female

DRUGS (1)
  1. BISOPROLOL [Suspect]
     Active Substance: BISOPROLOL
     Indication: Hypertension
     Dosage: FORM STRENGTH: 5 MILLIGRAM, DOSE: 1/4 TABLET
     Route: 065
     Dates: start: 2022

REACTIONS (3)
  - Angina pectoris [Recovered/Resolved]
  - Hypotension [Unknown]
  - Musculoskeletal chest pain [Recovering/Resolving]

NARRATIVE: CASE EVENT DATE: 20220101
